FAERS Safety Report 18845768 (Version 3)
Quarter: 2021Q2

REPORT INFORMATION
  Report Type: Spontaneous
  Country: NL (occurrence: NL)
  Receive Date: 20210203
  Receipt Date: 20210406
  Transmission Date: 20210717
  Serious: Yes (Hospitalization, Other)
  Sender: FDA-Public Use
  Company Number: NL-CELLTRION INC.-2021NL001229

PATIENT

DRUGS (1)
  1. INFLECTRA [Suspect]
     Active Substance: INFLIXIMAB-DYYB
     Indication: RETROPERITONEAL FIBROSIS
     Dosage: 400 MG, 0, 2 AND 6 WEEKS

REACTIONS (1)
  - Drug ineffective for unapproved indication [Unknown]
